FAERS Safety Report 14599139 (Version 1)
Quarter: 2018Q1

REPORT INFORMATION
  Report Type: Spontaneous
  Country: MA (occurrence: MA)
  Receive Date: 20180305
  Receipt Date: 20180305
  Transmission Date: 20180509
  Serious: Yes (Death)
  Sender: FDA-Public Use
  Company Number: MA-SA-2018SA060000

PATIENT
  Age: 10 Month
  Sex: Male

DRUGS (1)
  1. MYOZYME [Suspect]
     Active Substance: ALGLUCOSIDASE ALFA
     Indication: GLYCOGEN STORAGE DISEASE TYPE II
     Dosage: FREQUENCY: 10 DAYS
     Route: 042
     Dates: start: 20170720, end: 20180115

REACTIONS (2)
  - Death [Fatal]
  - Viral infection [Unknown]
